FAERS Safety Report 20205981 (Version 1)
Quarter: 2021Q4

REPORT INFORMATION
  Report Type: Spontaneous
  Country: US (occurrence: None)
  Receive Date: 20211217
  Receipt Date: 20211217
  Transmission Date: 20220303
  Serious: Yes (Other)
  Sender: FDA-Public Use
  Company Number: None

PATIENT
  Age: 50 Year
  Sex: Female
  Weight: 76.5 kg

DRUGS (9)
  1. HIZENTRA [Suspect]
     Active Substance: HUMAN IMMUNOGLOBULIN G
     Indication: Immunodeficiency
     Dosage: OTHER FREQUENCY : WEEKLY;?
     Route: 058
  2. HIZENTRA [Suspect]
     Active Substance: HUMAN IMMUNOGLOBULIN G
     Indication: Immunodeficiency
     Dosage: OTHER FREQUENCY : WEEKLY;?
     Route: 058
  3. acetaminophen 650 mg as needed [Concomitant]
  4. dalvance 1500 mg every 24 hours [Concomitant]
  5. diphenhydramine 25 mg as directed [Concomitant]
  6. heparin 300-500 units [Concomitant]
  7. linezolid 600 mg daily [Concomitant]
  8. losartan potassium 50 mg daily [Concomitant]
  9. DOXYCYCLINE [Concomitant]
     Active Substance: DOXYCYCLINE

REACTIONS (3)
  - Urticaria [None]
  - Burning sensation [None]
  - Skin burning sensation [None]

NARRATIVE: CASE EVENT DATE: 20211212
